FAERS Safety Report 20178058 (Version 2)
Quarter: 2022Q1

REPORT INFORMATION
  Report Type: Spontaneous
  Country: US (occurrence: US)
  Receive Date: 20211213
  Receipt Date: 20220327
  Transmission Date: 20220424
  Serious: No
  Sender: FDA-Public Use
  Company Number: US-SA-SAC20211207000486

PATIENT
  Age: 65 Year
  Sex: Male
  Weight: 85 kg

DRUGS (5)
  1. AUBAGIO [Suspect]
     Active Substance: TERIFLUNOMIDE
     Indication: Multiple sclerosis
     Dosage: 7 MG, QD
     Route: 048
     Dates: start: 2018, end: 20211125
  2. VITAMIN D3 [Concomitant]
     Active Substance: CHOLECALCIFEROL
  3. BACLOFEN [Concomitant]
     Active Substance: BACLOFEN
     Dosage: UNK MG
  4. DULOXETINE HYDROCHLORIDE [Concomitant]
     Active Substance: DULOXETINE HYDROCHLORIDE
     Dosage: UNK MG
  5. LIPITOR [Concomitant]
     Active Substance: ATORVASTATIN CALCIUM
     Dosage: UNK MG

REACTIONS (7)
  - Cough [Recovered/Resolved]
  - Mobility decreased [Unknown]
  - Fatigue [Unknown]
  - Condition aggravated [Unknown]
  - Product dose omission issue [Unknown]
  - Dysstasia [Recovering/Resolving]
  - Decreased appetite [Recovering/Resolving]

NARRATIVE: CASE EVENT DATE: 20210101
